FAERS Safety Report 8281436-8 (Version None)
Quarter: 2012Q2

REPORT INFORMATION
  Report Type: 
  Country: None (occurrence: None)
  Receive Date: 20120411
  Receipt Date: 20120411
  Transmission Date: 20120825
  Serious: Yes (Hospitalization, Disabling)
  Sender: FDA-Public Use
  Company Number: None

PATIENT
  Age: 56 Year
  Sex: Female
  Weight: 58.9676 kg

DRUGS (2)
  1. FOSAMAX [Suspect]
     Indication: OSTEOPENIA
     Dosage: WEEKLY ORAL
     Route: 048
  2. BONIVA [Suspect]
     Indication: OSTEOPENIA
     Dosage: MONTHLY ORAL
     Route: 048

REACTIONS (2)
  - HIP ARTHROPLASTY [None]
  - FEMUR FRACTURE [None]
